FAERS Safety Report 8488048-1 (Version None)
Quarter: 2012Q3

REPORT INFORMATION
  Report Type: 
  Country: None (occurrence: None)
  Receive Date: 20120705
  Receipt Date: 20120625
  Transmission Date: 20120928
  Serious: Yes (Other)
  Sender: FDA-Public Use
  Company Number: IL-BRISTOL-MYERS SQUIBB COMPANY-16719726

PATIENT
  Age: 63 Year
  Sex: Female

DRUGS (3)
  1. CARBOPLATIN [Suspect]
     Dosage: 100MG PER M2
     Dates: start: 20120614, end: 20120624
  2. ERBITUX [Suspect]
     Indication: SQUAMOUS CELL CARCINOMA OF THE CERVIX
     Dosage: TOTAL :890MG 5MG/ML IS THE STRENGTH LAST INFU:19JUN12
     Dates: start: 20120619, end: 20120624
  3. TAXOL [Suspect]
     Dosage: 50MG PER M2
     Dates: start: 20120614, end: 20120624

REACTIONS (1)
  - PLATELET COUNT DECREASED [None]
